FAERS Safety Report 4295702-4 (Version None)
Quarter: 2004Q1

REPORT INFORMATION
  Report Type: 
  Country: None (occurrence: None)
  Receive Date: 20040216
  Receipt Date: 20031211
  Transmission Date: 20041129
  Serious: Yes (Hospitalization, Disabling)
  Sender: FDA-Public Use
  Company Number: CH-GLAXOSMITHKLINE-B0317501A

PATIENT
  Sex: Male
  Weight: 64 kg

DRUGS (2)
  1. AUGMENTIN '125' [Suspect]
     Indication: PROSTATITIS
     Dosage: 1G TWICE PER DAY
     Route: 048
     Dates: start: 20030824, end: 20031005
  2. NO CONCURRENT MEDICATION [Concomitant]

REACTIONS (7)
  - ALANINE AMINOTRANSFERASE INCREASED [None]
  - ASPARTATE AMINOTRANSFERASE INCREASED [None]
  - BLOOD ALKALINE PHOSPHATASE INCREASED [None]
  - CHOLESTASIS [None]
  - JAUNDICE [None]
  - LIVER FUNCTION TEST ABNORMAL [None]
  - MALAISE [None]
